FAERS Safety Report 6519915-3 (Version None)
Quarter: 2009Q4

REPORT INFORMATION
  Report Type: 
  Country: None (occurrence: None)
  Receive Date: 20091229
  Receipt Date: 20091218
  Transmission Date: 20100525
  Serious: Yes (Hospitalization)
  Sender: FDA-Public Use
  Company Number: US-BIOGENIDEC-2009BI041063

PATIENT
  Age: 53 Year
  Sex: Female

DRUGS (17)
  1. TYSABRI [Suspect]
     Indication: MULTIPLE SCLEROSIS
     Route: 042
     Dates: start: 20080326, end: 20091118
  2. ADDERALL 10 [Concomitant]
     Route: 048
  3. AMIRIPTYLINE [Concomitant]
  4. AVALIDE [Concomitant]
  5. BACLOFEN [Concomitant]
     Route: 048
  6. BACTRIM DS [Concomitant]
  7. DANTRIUM [Concomitant]
     Route: 048
  8. ENABLEX [Concomitant]
     Route: 048
  9. MARINOL [Concomitant]
     Route: 048
  10. MULTI-VITAMIN [Concomitant]
  11. SOMA [Concomitant]
     Route: 048
  12. SYNTHROID [Concomitant]
     Route: 048
  13. ULTRAM [Concomitant]
     Route: 048
  14. URINARY HEALTH TABLET [Concomitant]
     Route: 048
  15. VITAMIN B-12 [Concomitant]
     Route: 048
  16. ASCORBIC ACID [Concomitant]
     Route: 048
  17. VITAMIN D [Concomitant]
     Route: 048

REACTIONS (1)
  - SURGERY [None]
